FAERS Safety Report 4588093-2 (Version None)
Quarter: 2005Q1

REPORT INFORMATION
  Report Type: 
  Country: None (occurrence: None)
  Receive Date: 20050216
  Receipt Date: 20050127
  Transmission Date: 20050727
  Serious: Yes (Other)
  Sender: FDA-Public Use
  Company Number: EWC050242501

PATIENT
  Age: 28 Year
  Sex: Male

DRUGS (4)
  1. HUMATROPE [Suspect]
     Indication: GROWTH HORMONE DEFICIENCY
     Dates: start: 20030101, end: 20050126
  2. LEVOTHYROXINE [Concomitant]
  3. HYDROCORTISONE [Concomitant]
  4. TESTOSTERONE [Concomitant]

REACTIONS (1)
  - CRANIOPHARYNGIOMA [None]
